FAERS Safety Report 23038473 (Version 1)
Quarter: 2023Q4

REPORT INFORMATION
  Report Type: Spontaneous
  Country: GB (occurrence: GB)
  Receive Date: 20231006
  Receipt Date: 20231006
  Transmission Date: 20240109
  Serious: Yes (Other)
  Sender: FDA-Public Use
  Company Number: GB-MHRA-MED-202309212045329750-SWJYH

PATIENT
  Age: 66 Year
  Sex: Female
  Weight: 51 kg

DRUGS (4)
  1. ROSUVASTATIN [Suspect]
     Active Substance: ROSUVASTATIN
     Indication: Product used for unknown indication
  2. DIAZEPAM [Concomitant]
     Active Substance: DIAZEPAM
     Indication: Sleep disorder
  3. DIHYDROCODEINE [Concomitant]
     Active Substance: DIHYDROCODEINE
     Indication: Product used for unknown indication
  4. ALLOPURINOL [Concomitant]
     Active Substance: ALLOPURINOL
     Indication: Product used for unknown indication

REACTIONS (3)
  - Nightmare [Not Recovered/Not Resolved]
  - Sleep disorder [Unknown]
  - Depressed mood [Unknown]

NARRATIVE: CASE EVENT DATE: 20230101
